FAERS Safety Report 4536885-8 (Version None)
Quarter: 2004Q4

REPORT INFORMATION
  Report Type: 
  Country: None (occurrence: None)
  Receive Date: 20041223
  Receipt Date: 20041218
  Transmission Date: 20050328
  Serious: Yes (Other)
  Sender: FDA-Public Use
  Company Number: GB-GLAXOSMITHKLINE-B0362242A

PATIENT
  Age: 59 Year
  Sex: Female
  Weight: 68.7 kg

DRUGS (10)
  1. FORTUM [Suspect]
     Dosage: 2G UNKNOWN
     Route: 042
     Dates: start: 20041126, end: 20041126
  2. CIPROFLOXACIN [Concomitant]
     Route: 065
  3. METFORMIN HCL [Concomitant]
     Route: 065
  4. MIXTARD HUMAN 70/30 [Concomitant]
     Route: 065
  5. SIMVASTATIN [Concomitant]
     Route: 065
  6. ATROVENT [Concomitant]
  7. CO-CODAMOL [Concomitant]
     Route: 065
  8. ALBUTEROL [Concomitant]
  9. PAROXETINE [Concomitant]
     Route: 065
  10. ERYTHROMYCIN [Concomitant]
     Route: 065

REACTIONS (5)
  - CHEST DISCOMFORT [None]
  - FLUSHING [None]
  - PALPITATIONS [None]
  - PARAESTHESIA [None]
  - SNEEZING [None]
